FAERS Safety Report 13332270 (Version 6)
Quarter: 2017Q4

REPORT INFORMATION
  Report Type: Report from Study
  Country: JP (occurrence: JP)
  Receive Date: 20170313
  Receipt Date: 20171122
  Transmission Date: 20180320
  Serious: Yes (Hospitalization)
  Sender: FDA-Public Use
  Company Number: JP-EISAI MEDICAL RESEARCH-EC-2017-025699

PATIENT
  Age: 75 Year
  Sex: Male
  Weight: 71 kg

DRUGS (13)
  1. MEPTIN [Concomitant]
     Active Substance: PROCATEROL HYDROCHLORIDE
  2. ALFACALCIDOL [Concomitant]
     Active Substance: ALFACALCIDOL
  3. MICARDIS [Concomitant]
     Active Substance: TELMISARTAN
  4. PARAMIDIN [Concomitant]
     Active Substance: BUCOLOME
  5. LENVIMA [Suspect]
     Active Substance: LENVATINIB
     Route: 048
     Dates: start: 20150828, end: 20150829
  6. HOKUNALIN: TAPE [Concomitant]
     Active Substance: TULOBUTEROL
  7. THYRADIN S [Concomitant]
     Active Substance: LEVOTHYROXINE SODIUM
  8. WARFARIN [Concomitant]
     Active Substance: WARFARIN
  9. ARTIST [Concomitant]
     Active Substance: CARVEDILOL
  10. HIRUDOID [Concomitant]
     Active Substance: GLYCOSAMINOGLYCANS
  11. LENVIMA [Suspect]
     Active Substance: LENVATINIB
     Indication: PAPILLARY THYROID CANCER
     Route: 048
     Dates: start: 20150804, end: 20150824
  12. BROTIZOLAM OD [Concomitant]
  13. BISOLVON [Concomitant]
     Active Substance: BROMHEXINE HYDROCHLORIDE

REACTIONS (2)
  - Asthma [Recovering/Resolving]
  - Decreased appetite [Recovering/Resolving]

NARRATIVE: CASE EVENT DATE: 20150824
